FAERS Safety Report 19097160 (Version 1)
Quarter: 2021Q2

REPORT INFORMATION
  Report Type: Spontaneous
  Country: US (occurrence: US)
  Receive Date: 20210406
  Receipt Date: 20210406
  Transmission Date: 20210717
  Serious: Yes (Hospitalization)
  Sender: FDA-Public Use
  Company Number: US-GLAXOSMITHKLINE-US2021072029

PATIENT
  Sex: Female

DRUGS (2)
  1. BENLYSTA [Suspect]
     Active Substance: BELIMUMAB
     Indication: SYSTEMIC LUPUS ERYTHEMATOSUS
     Dosage: UNKNOWN
  2. BENLYSTA [Suspect]
     Active Substance: BELIMUMAB
     Indication: RASH

REACTIONS (3)
  - Product prescribing issue [Unknown]
  - Surgery [Unknown]
  - Product use in unapproved indication [Unknown]
